FAERS Safety Report 21965163 (Version 1)
Quarter: 2023Q1

REPORT INFORMATION
  Report Type: Spontaneous
  Country: US (occurrence: US)
  Receive Date: 20230208
  Receipt Date: 20230208
  Transmission Date: 20230417
  Serious: No
  Sender: FDA-Public Use
  Company Number: US-CIPLA LTD.-2022US06402

PATIENT

DRUGS (3)
  1. TENOFOVIR [Suspect]
     Active Substance: TENOFOVIR
     Indication: Hepatitis B
     Dosage: UNK
     Route: 065
  2. PAXLOVID [Suspect]
     Active Substance: NIRMATRELVIR\RITONAVIR
     Indication: COVID-19
     Dosage: HALF DOSE ON THAT DAY, INSINUATED EVENING DOSE WAS TAKEN, NOT THE MORNING DOSE  (FULL 5-DAY COURSE)
     Route: 065
     Dates: start: 20220911, end: 20220916
  3. COVID-19 VACCINE NOS [Suspect]
     Active Substance: COVID-19 VACCINE NOS
     Indication: COVID-19 immunisation
     Dosage: UNK
     Route: 065

REACTIONS (4)
  - Gastric disorder [Unknown]
  - Oesophageal disorder [Unknown]
  - Epigastric discomfort [Unknown]
  - Hepatic enzyme increased [Not Recovered/Not Resolved]
